FAERS Safety Report 4740640-3 (Version None)
Quarter: 2005Q3

REPORT INFORMATION
  Report Type: 
  Country: None (occurrence: None)
  Receive Date: 20050801
  Receipt Date: 20050412
  Transmission Date: 20060218
  Serious: No
  Sender: FDA-Public Use
  Company Number: 800340

PATIENT
  Age: 64 Year
  Sex: Female

DRUGS (1)
  1. EXTRANEAL [Suspect]
     Indication: BLOOD GLUCOSE DECREASED
     Dates: start: 20050401, end: 20050408

REACTIONS (3)
  - RASH ERYTHEMATOUS [None]
  - RASH PAPULAR [None]
  - RASH PRURITIC [None]
